FAERS Safety Report 10041275 (Version 3)
Quarter: 2014Q2

REPORT INFORMATION
  Report Type: Spontaneous
  Country: US (occurrence: US)
  Receive Date: 20140327
  Receipt Date: 20140505
  Transmission Date: 20141212
  Serious: Yes (Death, Hospitalization)
  Sender: FDA-Public Use
  Company Number: US-PFIZER INC-2014085702

PATIENT
  Age: 67 Year
  Sex: Female

DRUGS (2)
  1. XALKORI [Suspect]
     Indication: LUNG NEOPLASM MALIGNANT
     Dosage: 250 MG, 2X/DAY
     Dates: start: 20140227
  2. XALKORI [Suspect]
     Indication: LIP NEOPLASM MALIGNANT STAGE UNSPECIFIED

REACTIONS (4)
  - Respiratory distress [Fatal]
  - Haemoptysis [Fatal]
  - Disease progression [Fatal]
  - Lung neoplasm malignant [Fatal]
